FAERS Safety Report 4985082-0 (Version None)
Quarter: 2006Q2

REPORT INFORMATION
  Report Type: 
  Country: None (occurrence: None)
  Receive Date: 20060419
  Receipt Date: 20060413
  Transmission Date: 20061013
  Serious: Yes (Death, Hospitalization)
  Sender: FDA-Public Use
  Company Number: HQWYE822513APR06

PATIENT
  Age: 86 Year
  Sex: Male

DRUGS (2)
  1. CORDARONE [Suspect]
     Indication: ARRHYTHMIA
     Dosage: 200 MG 1X PER 1 DAY ORAL
     Route: 048
     Dates: end: 20060102
  2. PREVISCAN (FLUINDIONE) [Concomitant]

REACTIONS (8)
  - BLOOD ALBUMIN DECREASED [None]
  - CHOLESTASIS [None]
  - CONDITION AGGRAVATED [None]
  - CYTOLYTIC HEPATITIS [None]
  - DECUBITUS ULCER [None]
  - GENERAL PHYSICAL HEALTH DETERIORATION [None]
  - HYPERTHYROIDISM [None]
  - MALNUTRITION [None]
